FAERS Safety Report 24691147 (Version 1)
Quarter: 2024Q4

REPORT INFORMATION
  Report Type: Spontaneous
  Country: US (occurrence: None)
  Receive Date: 20241202
  Receipt Date: 20241202
  Transmission Date: 20250115
  Serious: Yes (Death)
  Sender: Public
  Company Number: None

PATIENT
  Age: 63 Year
  Sex: Male
  Weight: 102.1 kg

DRUGS (3)
  1. SULFUR HEXAFLUORIDE [Suspect]
     Active Substance: SULFUR HEXAFLUORIDE
     Indication: Contrast echocardiogram
     Dosage: 1 ML ONCE INTRVENOUS BOLUS
     Route: 040
     Dates: start: 20241127, end: 20241127
  2. SULFUR HEXAFLUORIDE [Suspect]
     Active Substance: SULFUR HEXAFLUORIDE
     Indication: Stress echocardiogram
  3. ATORVASTATIN [Suspect]
     Active Substance: ATORVASTATIN

REACTIONS (7)
  - Rhabdomyolysis [None]
  - Feeling abnormal [None]
  - Paraesthesia [None]
  - Pulseless electrical activity [None]
  - Subcutaneous emphysema [None]
  - Shock [None]
  - Procedural failure [None]

NARRATIVE: CASE EVENT DATE: 20241127
